FAERS Safety Report 6556824-8 (Version None)
Quarter: 2010Q1

REPORT INFORMATION
  Report Type: 
  Country: None (occurrence: None)
  Receive Date: 20100128
  Receipt Date: 20100115
  Transmission Date: 20100710
  Serious: Yes (Hospitalization, Disabling, Other)
  Sender: FDA-Public Use
  Company Number: PHHY2010JP02312

PATIENT
  Sex: Male
  Weight: 65 kg

DRUGS (13)
  1. DIOVAN [Suspect]
     Indication: HYPERTENSION
     Dosage: 80 MG, QD
     Route: 048
     Dates: start: 20081106, end: 20081201
  2. DIOVAN [Suspect]
     Dosage: 80 MG, BID
     Route: 048
     Dates: start: 20081202, end: 20090821
  3. DIOVAN [Suspect]
     Dosage: 80 MG, QD
     Route: 048
     Dates: start: 20090822
  4. TENORMIN [Suspect]
     Indication: HYPERTENSION
     Dosage: 25 MG, UNK
     Route: 048
     Dates: start: 20090331, end: 20091009
  5. TENORMIN [Suspect]
     Dosage: 50 MG, UNK
     Route: 048
     Dates: start: 20091010
  6. FRANDOL [Concomitant]
     Indication: HYPERTENSION
     Dosage: 40 MG, UNK
     Route: 062
     Dates: start: 20071228
  7. FAMOTIDINE [Concomitant]
     Dosage: 40 MG, UNK
     Route: 048
     Dates: start: 20071228
  8. CLARITH [Concomitant]
     Dosage: 200 MG, UNK
     Route: 048
     Dates: start: 20071228
  9. PLAVIX [Concomitant]
     Dosage: 75 MG, UNK
     Route: 048
     Dates: start: 20071228
  10. MUCOSOLVAN [Concomitant]
     Dosage: 45 MG, UNK
     Route: 048
     Dates: start: 20071228
  11. LIVALO [Concomitant]
     Dosage: 1 MG, UNK
     Route: 048
     Dates: start: 20071228
  12. SPIRIVA [Concomitant]
     Dosage: 18 UG, UNK
     Dates: start: 20081024
  13. ASPIRIN [Concomitant]
     Dosage: 100 MG, UNK
     Route: 048
     Dates: start: 20090217

REACTIONS (5)
  - ANGINA PECTORIS [None]
  - ANGIOPLASTY [None]
  - ARTERIOSCLEROSIS OBLITERANS [None]
  - CONDITION AGGRAVATED [None]
  - NEUROPATHY PERIPHERAL [None]
